FAERS Safety Report 7603910-7 (Version None)
Quarter: 2011Q3

REPORT INFORMATION
  Report Type: 
  Country: None (occurrence: None)
  Receive Date: 20110712
  Receipt Date: 20110707
  Transmission Date: 20111222
  Serious: Yes (Life-Threatening, Hospitalization)
  Sender: FDA-Public Use
  Company Number: BR-ROCHE-696641

PATIENT
  Sex: Male
  Weight: 82 kg

DRUGS (3)
  1. INTERFERON ALFA [Suspect]
     Indication: RENAL CANCER
     Dosage: DOSE: 9 MU, TEMPORARILY HELD.
     Route: 042
     Dates: start: 20091216, end: 20100101
  2. INTERFERON ALFA [Suspect]
     Dosage: DOSE REDUCED  DOSE: 6MU SINCE CYCLE 4
     Route: 042
     Dates: end: 20100331
  3. BEVACIZUMAB [Suspect]
     Indication: RENAL CELL CARCINOMA
     Dosage: FREQUENCY REPORTED AS 2/2WEEKS (EVERY 2 WEEKS).
     Route: 042
     Dates: start: 20091216, end: 20100331

REACTIONS (4)
  - GASTROINTESTINAL PERFORATION [None]
  - INTESTINAL FISTULA [None]
  - INFECTIOUS PERITONITIS [None]
  - APPENDICITIS [None]
